FAERS Safety Report 4592339-4 (Version None)
Quarter: 2005Q1

REPORT INFORMATION
  Report Type: 
  Country: None (occurrence: None)
  Receive Date: 20050228
  Receipt Date: 20041213
  Transmission Date: 20050727
  Serious: Yes (Other)
  Sender: FDA-Public Use
  Company Number: US-BRISTOL-MYERS SQUIBB COMPANY-12793147

PATIENT
  Age: 42 Year
  Sex: Male
  Weight: 51 kg

DRUGS (2)
  1. ABILIFY [Suspect]
     Route: 048
  2. REMERON [Concomitant]

REACTIONS (1)
  - PRIAPISM [None]
